FAERS Safety Report 19468573 (Version 1)
Quarter: 2021Q2

REPORT INFORMATION
  Report Type: Spontaneous
  Country: US (occurrence: US)
  Receive Date: 20210628
  Receipt Date: 20210628
  Transmission Date: 20210717
  Serious: Yes (Hospitalization)
  Sender: FDA-Public Use
  Company Number: US-INTRA-CELLULAR THERAPIES, INC.-2021ICT00282

PATIENT
  Sex: Male

DRUGS (2)
  1. CAPLYTA [Suspect]
     Active Substance: LUMATEPERONE
     Indication: SCHIZOPHRENIA
     Dosage: UNK
     Dates: end: 2021
  2. CAPLYTA [Suspect]
     Active Substance: LUMATEPERONE
     Dosage: 42 MG, EVERY 48 HOURS

REACTIONS (5)
  - Illness [Unknown]
  - Off label use [Not Recovered/Not Resolved]
  - Hyperhidrosis [Unknown]
  - Skin burning sensation [Unknown]
  - Feeling cold [Unknown]
